FAERS Safety Report 23628173 (Version 4)
Quarter: 2024Q4

REPORT INFORMATION
  Report Type: Report from Study
  Country: ES (occurrence: ES)
  Receive Date: 20240313
  Receipt Date: 20241030
  Transmission Date: 20250115
  Serious: Yes (Hospitalization, Other)
  Sender: AMGEN
  Company Number: ES-SA-SAC20240116001246

PATIENT
  Age: 58 Year
  Sex: Male
  Weight: 80 kg

DRUGS (28)
  1. CARFILZOMIB [Suspect]
     Active Substance: CARFILZOMIB
     Indication: Plasma cell myeloma refractory
     Dosage: 80 MILLIGRAM, QWK
     Route: 065
     Dates: start: 20230913, end: 20230928
  2. CARFILZOMIB [Suspect]
     Active Substance: CARFILZOMIB
     Dosage: 80 MILLIGRAM, QWK
     Route: 065
     Dates: start: 20230614, end: 20230629
  3. CARFILZOMIB [Suspect]
     Active Substance: CARFILZOMIB
     Dosage: 80 MILLIGRAM, QWK
     Route: 065
     Dates: start: 20231107, end: 20231122
  4. CARFILZOMIB [Suspect]
     Active Substance: CARFILZOMIB
     Dosage: 80 MILLIGRAM, QWK
     Route: 065
     Dates: start: 20231010, end: 20231025
  5. CARFILZOMIB [Suspect]
     Active Substance: CARFILZOMIB
     Dosage: 80 MILLIGRAM, QWK
     Route: 065
     Dates: start: 20230712, end: 20230727
  6. CARFILZOMIB [Suspect]
     Active Substance: CARFILZOMIB
     Dosage: 80 MILLIGRAM, QWK
     Route: 065
     Dates: start: 20230809, end: 20230824
  7. ISATUXIMAB [Suspect]
     Active Substance: ISATUXIMAB
     Indication: Plasma cell myeloma refractory
     Dosage: 900 MG, QW
     Route: 065
     Dates: start: 20230614, end: 20230705
  8. ISATUXIMAB [Suspect]
     Active Substance: ISATUXIMAB
     Indication: Plasma cell myeloma refractory
     Dosage: 900 MG, BIW
     Route: 065
     Dates: start: 20230712, end: 20230726
  9. ISATUXIMAB [Suspect]
     Active Substance: ISATUXIMAB
     Dosage: 900 MG, BIW
     Route: 065
     Dates: start: 20230809, end: 20230823
  10. ISATUXIMAB [Suspect]
     Active Substance: ISATUXIMAB
     Dosage: 900 MG, BIW
     Route: 065
     Dates: start: 20230913, end: 20230927
  11. ISATUXIMAB [Suspect]
     Active Substance: ISATUXIMAB
     Dosage: 900 MG, BIW
     Route: 065
     Dates: start: 20231010, end: 20231024
  12. ISATUXIMAB [Suspect]
     Active Substance: ISATUXIMAB
     Dosage: 900 MG, BIW
     Route: 065
     Dates: start: 20231107, end: 20231121
  13. DEXAMETHASONE [Suspect]
     Active Substance: DEXAMETHASONE
     Indication: Plasma cell myeloma refractory
     Dosage: 20 MG, BIW
     Route: 065
     Dates: start: 20230614, end: 20230629
  14. DEXAMETHASONE [Suspect]
     Active Substance: DEXAMETHASONE
     Indication: Encephalitis
     Dosage: 20 MG, BIW
     Route: 065
     Dates: start: 20230712, end: 20230727
  15. DEXAMETHASONE [Suspect]
     Active Substance: DEXAMETHASONE
     Dosage: 20 MG, BIW
     Route: 065
     Dates: start: 20230809, end: 20230824
  16. DEXAMETHASONE [Suspect]
     Active Substance: DEXAMETHASONE
     Dosage: 20 MG, BIW
     Route: 065
     Dates: start: 20230913, end: 20230928
  17. DEXAMETHASONE [Suspect]
     Active Substance: DEXAMETHASONE
     Dosage: 20 MG, BIW
     Route: 065
     Dates: start: 20231010, end: 20231025
  18. DEXAMETHASONE [Suspect]
     Active Substance: DEXAMETHASONE
     Dosage: 20 MG, BIW
     Route: 065
     Dates: start: 20231107
  19. ALLOPURINOL [Concomitant]
     Active Substance: ALLOPURINOL
     Indication: Arthritis
     Dosage: UNK, QCY
     Route: 065
     Dates: start: 20120925
  20. DIAZEPAM [Concomitant]
     Active Substance: DIAZEPAM
     Indication: Encephalitis
     Dosage: UNK
     Route: 065
     Dates: start: 20240101, end: 20240101
  21. LEVETIRACETAM [Concomitant]
     Active Substance: LEVETIRACETAM
     Indication: Encephalitis
     Dosage: UNK
     Route: 065
     Dates: start: 20240102, end: 20240104
  22. AMPICILLIN [Concomitant]
     Active Substance: AMPICILLIN
     Indication: Encephalitis
     Dosage: UNK
     Route: 065
     Dates: start: 20240101, end: 20240102
  23. INSULIN NOS [Concomitant]
     Active Substance: INSULIN NOS
     Indication: Encephalitis
     Dosage: UNK
     Route: 065
     Dates: start: 20240106, end: 20240122
  24. LINEZOLID [Concomitant]
     Active Substance: LINEZOLID
     Indication: Encephalitis
     Dosage: UNK
     Route: 065
     Dates: start: 20240102, end: 20240105
  25. BRIVARACETAM [Concomitant]
     Active Substance: BRIVARACETAM
     Indication: Encephalitis
     Dosage: UNK
     Route: 065
     Dates: start: 20240105, end: 20240216
  26. CHLORPROMAZINE [Concomitant]
     Active Substance: CHLORPROMAZINE
     Indication: Encephalitis
     Dosage: UNK
     Route: 065
     Dates: start: 20240101
  27. ACYCLOVIR [Concomitant]
     Active Substance: ACYCLOVIR
     Dosage: UNK
     Dates: start: 20200602
  28. CEFTRIAXONE [Concomitant]
     Active Substance: CEFTRIAXONE
     Indication: Encephalitis
     Dosage: UNK
     Route: 065
     Dates: start: 20240102, end: 20240123

REACTIONS (7)
  - Encephalitis [Recovered/Resolved]
  - Pyrexia [Recovered/Resolved]
  - Pyrexia [Recovered/Resolved]
  - Plasma cell myeloma [Not Recovered/Not Resolved]
  - Urinary tract infection bacterial [Recovered/Resolved]
  - Febrile neutropenia [Recovered/Resolved]
  - Pyrexia [Recovered/Resolved]

NARRATIVE: CASE EVENT DATE: 20231129
